FAERS Safety Report 20255056 (Version 3)
Quarter: 2022Q1

REPORT INFORMATION
  Report Type: Spontaneous
  Country: US (occurrence: US)
  Receive Date: 20211230
  Receipt Date: 20220225
  Transmission Date: 20220423
  Serious: Yes (Other)
  Sender: FDA-Public Use
  Company Number: US-PFIZER INC-202101849647

PATIENT
  Age: 56 Year
  Sex: Female
  Weight: 49.887 kg

DRUGS (1)
  1. NEURONTIN [Suspect]
     Active Substance: GABAPENTIN
     Dosage: UNK, SINGLE
     Route: 048
     Dates: start: 2002

REACTIONS (11)
  - Seizure [Recovered/Resolved]
  - Drug hypersensitivity [Unknown]
  - Dizziness [Recovered/Resolved]
  - Tremor [Recovered/Resolved]
  - Ataxia [Recovered/Resolved]
  - Headache [Recovered/Resolved]
  - Fall [Unknown]
  - Weight increased [Unknown]
  - Limb injury [Unknown]
  - Head injury [Unknown]
  - Neuralgia [Unknown]

NARRATIVE: CASE EVENT DATE: 20020101
